FAERS Safety Report 6544265-9 (Version None)
Quarter: 2010Q1

REPORT INFORMATION
  Report Type: 
  Country: None (occurrence: None)
  Receive Date: 20100115
  Receipt Date: 20100104
  Transmission Date: 20100710
  Serious: Yes (Other)
  Sender: FDA-Public Use
  Company Number: 2010AP000035

PATIENT
  Age: 42 Year
  Sex: Male

DRUGS (2)
  1. CITALOPRAM HYDROBROMIDE [Suspect]
     Indication: DEPRESSION
     Dosage: 20 MG;QD;  PO
     Route: 048
     Dates: start: 20091123
  2. BECLOMETHASONE DIPROPIONATE [Concomitant]

REACTIONS (5)
  - DRY MOUTH [None]
  - ERECTILE DYSFUNCTION [None]
  - LOSS OF LIBIDO [None]
  - MALAISE [None]
  - POOR QUALITY SLEEP [None]
